FAERS Safety Report 5566581-X (Version None)
Quarter: 2007Q4

REPORT INFORMATION
  Report Type: 
  Country: None (occurrence: None)
  Receive Date: 20071219
  Receipt Date: 20071207
  Transmission Date: 20080405
  Serious: Yes (Death, Life-Threatening, Hospitalization)
  Sender: FDA-Public Use
  Company Number: JP-ROCHE-382106

PATIENT
  Age: 55 Year
  Sex: Female
  Weight: 70 kg

DRUGS (2)
  1. XELODA [Suspect]
     Indication: BREAST CANCER METASTATIC
     Route: 048
     Dates: start: 20040609, end: 20040724
  2. XELODA [Suspect]
     Route: 048
     Dates: start: 20040924

REACTIONS (7)
  - ANAEMIA [None]
  - DEATH [None]
  - DIARRHOEA [None]
  - JAUNDICE [None]
  - PALMAR-PLANTAR ERYTHRODYSAESTHESIA SYNDROME [None]
  - PLATELET COUNT DECREASED [None]
  - WHITE BLOOD CELL COUNT DECREASED [None]
